FAERS Safety Report 4575298-X (Version None)
Quarter: 2005Q1

REPORT INFORMATION
  Report Type: 
  Country: None (occurrence: None)
  Receive Date: 20050118
  Receipt Date: 20040202
  Transmission Date: 20050727
  Serious: Yes (Hospitalization, Other)
  Sender: FDA-Public Use
  Company Number: HQWYE795903FEB04

PATIENT
  Age: 51 Year
  Sex: Female
  Weight: 99.88 kg

DRUGS (2)
  1. PREMPRO [Suspect]
     Indication: HORMONE REPLACEMENT THERAPY
     Dosage: 0.625 MG/2.5 MG DAILY, ORAL
     Route: 048
     Dates: start: 20000911, end: 20001201
  2. LOZOL [Concomitant]

REACTIONS (1)
  - BREAST CANCER FEMALE [None]
